FAERS Safety Report 6158752-9 (Version None)
Quarter: 2009Q2

REPORT INFORMATION
  Report Type: 
  Country: None (occurrence: None)
  Receive Date: 20090417
  Receipt Date: 20090407
  Transmission Date: 20091009
  Serious: Yes (Hospitalization)
  Sender: FDA-Public Use
  Company Number: B0558032A

PATIENT
  Sex: Male

DRUGS (4)
  1. WELLVONE [Suspect]
     Route: 048
     Dates: start: 20081224, end: 20090127
  2. VFEND [Suspect]
     Route: 042
     Dates: start: 20081224, end: 20090127
  3. ROCEPHIN [Suspect]
     Route: 042
     Dates: start: 20081224, end: 20081231
  4. MABCAMPATH [Suspect]
     Route: 065
     Dates: start: 20080922, end: 20081203

REACTIONS (1)
  - LEUKOPENIA [None]
